FAERS Safety Report 13066101 (Version 1)
Quarter: 2016Q4

REPORT INFORMATION
  Report Type: Other
  Country: None (occurrence: JP)
  Receive Date: 20161227
  Receipt Date: 20161227
  Transmission Date: 20170207
  Serious: Yes (Other)
  Sender: FDA-Public Use
  Company Number: JP-GUERBET LLC-1061303

PATIENT
  Age: 7 Year
  Sex: Male

DRUGS (3)
  1. THERARUBICIN (PIRARUBICIN HYDROCHLORIDE) [Concomitant]
     Route: 013
  2. LIPIODOL [Suspect]
     Active Substance: ETHIODIZED OIL
     Indication: TRANSCATHETER ARTERIAL CHEMOEMBOLISATION
     Route: 013
  3. GELATIN SPONGE (GELATIN) [Concomitant]
     Route: 013

REACTIONS (3)
  - Medication residue present [Unknown]
  - Off label use [Unknown]
  - Lung disorder [Unknown]
